FAERS Safety Report 14266705 (Version 6)
Quarter: 2018Q3

REPORT INFORMATION
  Report Type: Spontaneous
  Country: JP (occurrence: JP)
  Receive Date: 20171211
  Receipt Date: 20180726
  Transmission Date: 20181010
  Serious: Yes (Death, Other)
  Sender: FDA-Public Use
  Company Number: JP-009507513-1712JPN000718J

PATIENT
  Age: 48 Year
  Sex: Male
  Weight: 55 kg

DRUGS (18)
  1. DAIPHEN [Suspect]
     Active Substance: SULFAMETHOXAZOLE\TRIMETHOPRIM
     Indication: ANTIFUNGAL PROPHYLAXIS
     Dosage: 1 DF, QD
     Route: 050
     Dates: start: 20171118, end: 20171203
  2. SULBACILLIN [Suspect]
     Active Substance: AMPICILLIN SODIUM\SULBACTAM SODIUM
     Indication: BACTERIAL INFECTION
     Dosage: 3 G, BID
     Route: 041
     Dates: start: 20171129, end: 20171201
  3. NAIXAN [Suspect]
     Active Substance: NAPROXEN SODIUM
     Indication: TUMOUR ASSOCIATED FEVER
     Dosage: 200 MG, TID
     Route: 050
     Dates: start: 20171202, end: 20171203
  4. LOXOPROFEN [Suspect]
     Active Substance: LOXOPROFEN
     Indication: PYREXIA
     Dosage: 60 MG, PRN
     Route: 050
     Dates: start: 20171119
  5. RABEPRAZOLE NA [Concomitant]
     Active Substance: RABEPRAZOLE SODIUM
     Indication: GASTRIC ULCER
     Dosage: 10 MG, QD
     Route: 050
     Dates: start: 20171020, end: 20171203
  6. ADONA (CARBAZOCHROME SODIUM SULFONATE) [Concomitant]
     Active Substance: CARBAZOCHROME SODIUM SULFONATE
     Indication: HAEMOPTYSIS
     Dosage: 30 MG, TID
     Route: 050
     Dates: start: 20171118, end: 20171203
  7. PRIMPERAN [Concomitant]
     Active Substance: METOCLOPRAMIDE HYDROCHLORIDE
     Indication: VOMITING
     Dosage: 5 MG, PRN
     Route: 050
     Dates: start: 20171121
  8. RINDERON V [Concomitant]
     Active Substance: BETAMETHASONE VALERATE
     Dosage: 3.5 MG, UNK
     Route: 050
     Dates: start: 20171128, end: 20171203
  9. CODEINE PHOSPHATE HYDRATE [Concomitant]
     Active Substance: CODEINE PHOSPHATE
     Indication: COUGH
     Dosage: 20 MG, BID
     Route: 050
     Dates: start: 20171019, end: 20171202
  10. RINDERON V [Concomitant]
     Active Substance: BETAMETHASONE VALERATE
     Dosage: 1 MG, UNK
     Route: 050
     Dates: start: 20171111, end: 20171118
  11. RINDERON V [Concomitant]
     Active Substance: BETAMETHASONE VALERATE
     Dosage: 0.75 MG, UNK
     Route: 050
     Dates: start: 20171119, end: 20171121
  12. BROTIZOLAM OD [Concomitant]
     Indication: INSOMNIA
     Dosage: 0.25 MG, QD
     Route: 050
     Dates: start: 20171018, end: 20171203
  13. RANMARK [Concomitant]
     Active Substance: DENOSUMAB
     Indication: METASTASES TO BONE
     Dosage: 120 MG, UNK
     Route: 058
     Dates: start: 20171125, end: 20171125
  14. ORADOL [Concomitant]
     Indication: PHARYNGITIS
     Dosage: 0.5 MG, PRN
     Route: 048
     Dates: start: 20171127
  15. KEYTRUDA [Suspect]
     Active Substance: PEMBROLIZUMAB
     Indication: LUNG ADENOCARCINOMA
     Dosage: 200 MG, Q3W
     Route: 041
     Dates: start: 20171117, end: 20171117
  16. DENOTAS [Concomitant]
     Active Substance: CALCIUM CARBONATE\CHOLECALCIFEROL\MAGNESIUM CARBONATE
     Indication: PROPHYLAXIS
     Dosage: 2 DF, QD
     Route: 050
     Dates: start: 20171026, end: 20171203
  17. LINOLOSAL [Concomitant]
     Active Substance: BETAMETHASONE SODIUM PHOSPHATE
     Dosage: 4 MG, UNK
     Route: 041
     Dates: start: 20171120, end: 20171127
  18. RIVOTRIL [Concomitant]
     Active Substance: CLONAZEPAM
     Indication: HICCUPS
     Dosage: 0.5 MG, PRN
     Route: 050
     Dates: start: 20171121

REACTIONS (2)
  - Toxic epidermal necrolysis [Fatal]
  - Multiple organ dysfunction syndrome [Fatal]

NARRATIVE: CASE EVENT DATE: 20171204
